FAERS Safety Report 22255562 (Version 1)
Quarter: 2023Q2

REPORT INFORMATION
  Report Type: Spontaneous
  Country: ES (occurrence: ES)
  Receive Date: 20230426
  Receipt Date: 20230426
  Transmission Date: 20230721
  Serious: Yes (Hospitalization)
  Sender: FDA-Public Use
  Company Number: None

PATIENT
  Age: 38 Year
  Sex: Female

DRUGS (1)
  1. OXYTOCIN [Suspect]
     Active Substance: OXYTOCIN
     Indication: Product used for unknown indication
     Route: 042
     Dates: start: 20220914, end: 20220914

REACTIONS (2)
  - Wrong product administered [Recovered/Resolved]
  - Postpartum haemorrhage [Recovered/Resolved]

NARRATIVE: CASE EVENT DATE: 20220914
